FAERS Safety Report 11816707 (Version 1)
Quarter: 2015Q4

REPORT INFORMATION
  Report Type: Spontaneous
  Country: DK (occurrence: DK)
  Receive Date: 20151210
  Receipt Date: 20151210
  Transmission Date: 20160305
  Serious: Yes (Hospitalization)
  Sender: FDA-Public Use
  Company Number: DK-ORION CORPORATION ORION PHARMA-15_00001499

PATIENT
  Age: 63 Year
  Sex: Male

DRUGS (5)
  1. ALLOPURINOL DAK [Concomitant]
     Indication: GOUT
     Route: 065
  2. ANCOZAN [Suspect]
     Active Substance: LOSARTAN POTASSIUM
     Indication: HYPERTENSION
     Dosage: STRENGTH: 100 MG
     Route: 048
     Dates: end: 20150906
  3. METOPROLOLSUCCINAT ORION [Concomitant]
     Indication: HYPERTENSION
     Route: 065
  4. ALDACTONE [Suspect]
     Active Substance: SPIRONOLACTONE
     Indication: RENAL FAILURE
     Dosage: STRENGTH: 25 MG
     Route: 048
     Dates: start: 20150804, end: 20150905
  5. FURIX [Suspect]
     Active Substance: FUROSEMIDE
     Indication: RENAL FAILURE
     Dosage: STRENGTH: 250 MG
     Route: 048
     Dates: end: 20150905

REACTIONS (6)
  - Fatigue [Recovered/Resolved]
  - Nausea [Recovered/Resolved]
  - Dehydration [Recovered/Resolved]
  - Hyperkalaemia [Recovered/Resolved]
  - Hyponatraemia [Recovered/Resolved]
  - Decreased appetite [Recovered/Resolved]

NARRATIVE: CASE EVENT DATE: 201509
